FAERS Safety Report 6558983-X (Version None)
Quarter: 2010Q1

REPORT INFORMATION
  Report Type: 
  Country: None (occurrence: None)
  Receive Date: 20100129
  Receipt Date: 20100119
  Transmission Date: 20100710
  Serious: Yes (Hospitalization)
  Sender: FDA-Public Use
  Company Number: DK-WYE-G05081509

PATIENT
  Sex: Male
  Weight: 70 kg

DRUGS (1)
  1. EFFEXOR [Suspect]
     Indication: ANXIETY
     Dosage: 150 MG + 75 MG DAILY
     Route: 048
     Dates: start: 20061115, end: 20091115

REACTIONS (7)
  - BLOOD URINE PRESENT [None]
  - CHROMATURIA [None]
  - COMPARTMENT SYNDROME [None]
  - MUSCLE NECROSIS [None]
  - NITRITE URINE PRESENT [None]
  - PROTEIN URINE PRESENT [None]
  - URINE KETONE BODY PRESENT [None]
